FAERS Safety Report 10348809 (Version 1)
Quarter: 2014Q3

REPORT INFORMATION
  Report Type: Spontaneous
  Country: GB (occurrence: None)
  Receive Date: 20140725
  Receipt Date: 20140725
  Transmission Date: 20150326
  Serious: Yes (Other)
  Sender: FDA-Public Use
  Company Number: AUR-APL-2014-07883

PATIENT

DRUGS (2)
  1. TRAMADOL (TRAMADOL) [Suspect]
     Active Substance: TRAMADOL
     Indication: ARTHRALGIA
  2. CITALOPRAM [Suspect]
     Active Substance: CITALOPRAM HYDROBROMIDE
     Indication: PRODUCT USED FOR UNKNOWN INDICATION

REACTIONS (10)
  - Confusional state [None]
  - Fall [None]
  - Medication error [None]
  - Unresponsive to stimuli [None]
  - Speech disorder [None]
  - Disorientation [None]
  - Bruxism [None]
  - Muscle rigidity [None]
  - Accidental overdose [None]
  - Drug interaction [None]
